FAERS Safety Report 5347283-1 (Version None)
Quarter: 2007Q2

REPORT INFORMATION
  Report Type: 
  Country: None (occurrence: None)
  Receive Date: 20070509
  Receipt Date: 20061205
  Transmission Date: 20071010
  Serious: Yes (Hospitalization)
  Sender: FDA-Public Use
  Company Number: 474145

PATIENT
  Age: 42 Year
  Sex: Female

DRUGS (3)
  1. FUZEON [Suspect]
     Indication: HIV INFECTION
     Dosage: 2 PER DAY SUBCUTANEOUS
     Route: 058
     Dates: start: 20061101, end: 20061118
  2. VIREAD [Concomitant]
  3. ZIDOVUDINE [Concomitant]

REACTIONS (1)
  - INJECTION SITE REACTION [None]
